FAERS Safety Report 11534450 (Version 4)
Quarter: 2016Q1

REPORT INFORMATION
  Report Type: Report from Study
  Country: FR (occurrence: FR)
  Receive Date: 20150922
  Receipt Date: 20160208
  Transmission Date: 20160525
  Serious: Yes (Hospitalization, Other)
  Sender: FDA-Public Use
  Company Number: PHHY2015FR075430

PATIENT
  Age: 58 Year
  Sex: Male
  Weight: 85 kg

DRUGS (4)
  1. AFINITOR [Suspect]
     Active Substance: EVEROLIMUS
     Dosage: 10 MG, QD
     Route: 048
     Dates: start: 20150527
  2. IMODIUM [Concomitant]
     Active Substance: LOPERAMIDE HYDROCHLORIDE
     Indication: PRODUCT USED FOR UNKNOWN INDICATION
     Dosage: 2 MG, IF NEEDED
     Route: 065
  3. INEXIUM//ESOMEPRAZOLE MAGNESIUM [Concomitant]
     Active Substance: ESOMEPRAZOLE MAGNESIUM
     Indication: PROPHYLAXIS
     Dosage: 10 MG, QD
     Route: 065
     Dates: start: 20150527
  4. AFINITOR [Suspect]
     Active Substance: EVEROLIMUS
     Indication: METASTATIC RENAL CELL CARCINOMA
     Dosage: 10 MG, QD
     Route: 048
     Dates: start: 201505

REACTIONS (10)
  - Crepitations [Recovered/Resolved]
  - Rash papular [Recovered/Resolved]
  - Xerosis [Unknown]
  - Type 2 diabetes mellitus [Not Recovered/Not Resolved]
  - Rash [Unknown]
  - Hepatocellular injury [Recovered/Resolved]
  - Nail toxicity [Not Recovered/Not Resolved]
  - Dyslipidaemia [Unknown]
  - Glomerular filtration rate decreased [Unknown]
  - Microalbuminuria [Unknown]

NARRATIVE: CASE EVENT DATE: 201506
